FAERS Safety Report 13908639 (Version 1)
Quarter: 2017Q3

REPORT INFORMATION
  Report Type: Spontaneous
  Country: US (occurrence: US)
  Receive Date: 20170827
  Receipt Date: 20170827
  Transmission Date: 20171127
  Serious: No
  Sender: FDA-Public Use
  Company Number: GXBR2017US002222

PATIENT
  Age: 83 Year
  Sex: Male

DRUGS (1)
  1. LATANOPROST. [Suspect]
     Active Substance: LATANOPROST
     Indication: PRODUCT USED FOR UNKNOWN INDICATION
     Dosage: UNK
     Route: 047

REACTIONS (4)
  - Eye irritation [Unknown]
  - Visual impairment [Unknown]
  - Vitreous floaters [Unknown]
  - Dizziness [Unknown]

NARRATIVE: CASE EVENT DATE: 201007
